FAERS Safety Report 15152265 (Version 1)
Quarter: 2018Q3

REPORT INFORMATION
  Report Type: Spontaneous
  Country: IT (occurrence: IT)
  Receive Date: 20180717
  Receipt Date: 20180717
  Transmission Date: 20181010
  Serious: Yes (Other)
  Sender: FDA-Public Use
  Company Number: IT-TEVA-2018-IT-926892

PATIENT
  Age: 70 Year
  Sex: Male

DRUGS (6)
  1. VYTORIN [Concomitant]
     Active Substance: EZETIMIBE\SIMVASTATIN
     Route: 065
  2. ZYLORIC [Concomitant]
     Active Substance: ALLOPURINOL
     Route: 065
  3. DIBASE [Concomitant]
     Active Substance: CHOLECALCIFEROL
     Route: 065
  4. METHOTREXATE. [Suspect]
     Active Substance: METHOTREXATE
     Indication: ARTHRITIS ENTEROPATHIC
     Route: 058
     Dates: start: 20160606
  5. MICARDIS [Concomitant]
     Active Substance: TELMISARTAN
     Route: 065
  6. FOLINA [Concomitant]
     Active Substance: FOLIC ACID
     Route: 065

REACTIONS (1)
  - Sinusitis bacterial [Recovering/Resolving]

NARRATIVE: CASE EVENT DATE: 20180604
